FAERS Safety Report 24585020 (Version 1)
Quarter: 2024Q4

REPORT INFORMATION
  Report Type: Spontaneous
  Country: US (occurrence: US)
  Receive Date: 20241106
  Receipt Date: 20241106
  Transmission Date: 20250114
  Serious: Yes (Hospitalization, Other)
  Sender: FRESENIUS KABI
  Company Number: US-FreseniusKabi-FK202416577

PATIENT
  Age: 56 Year
  Sex: Female

DRUGS (1)
  1. ISOSULFAN BLUE [Suspect]
     Active Substance: ISOSULFAN BLUE
     Indication: Lymphatic mapping

REACTIONS (1)
  - Anaphylactic reaction [Unknown]
